FAERS Safety Report 7740694-6 (Version None)
Quarter: 2011Q3

REPORT INFORMATION
  Report Type: 
  Country: None (occurrence: None)
  Receive Date: 20110909
  Receipt Date: 20110831
  Transmission Date: 20111222
  Serious: Yes (Death, Life-Threatening, Hospitalization)
  Sender: FDA-Public Use
  Company Number: JP-CEPHALON-2011003244

PATIENT
  Sex: Male
  Weight: 67 kg

DRUGS (14)
  1. ALLOPURINOL [Concomitant]
  2. CHLORPHENIRAMINE MALEATE [Concomitant]
     Dates: start: 20110131, end: 20110201
  3. LOXOPROFEN SODIUM [Concomitant]
  4. TREANDA [Suspect]
     Indication: B-CELL SMALL LYMPHOCYTIC LYMPHOMA
     Route: 042
     Dates: start: 20110131, end: 20110201
  5. BROTIZOLAM [Concomitant]
  6. DEFERASIROX [Concomitant]
     Dates: start: 20110210
  7. ITRACONAZOLE [Concomitant]
  8. DEFEROXAMINE MESYLATE [Concomitant]
     Dates: end: 20110208
  9. ACYCLOVIR [Concomitant]
  10. RILMAZAFONE HYDROCHLORIDE [Concomitant]
     Dates: end: 20110130
  11. SULFAMETHOXAZOLE AND TRIMETHOPRIM [Concomitant]
  12. DEXAMETHASONE SODIUM PHOSPHATE [Concomitant]
     Dates: start: 20110131, end: 20110201
  13. PALONOSETRON HYDROCHLORIDE [Concomitant]
     Dates: start: 20110131, end: 20110131
  14. LANSOPRAZOLE [Concomitant]

REACTIONS (2)
  - PANCYTOPENIA [None]
  - UPPER GASTROINTESTINAL HAEMORRHAGE [None]
